FAERS Safety Report 16812845 (Version 2)
Quarter: 2022Q1

REPORT INFORMATION
  Report Type: Spontaneous
  Country: PL (occurrence: PL)
  Receive Date: 20190916
  Receipt Date: 20220130
  Transmission Date: 20220423
  Serious: Yes (Death, Hospitalization, Other)
  Sender: FDA-Public Use
  Company Number: PL-JAZZ-2019-PL-004696

PATIENT
  Age: 17 Year
  Sex: Male

DRUGS (1)
  1. ASPARAGINASE [Suspect]
     Active Substance: ASPARAGINASE
     Indication: Acute lymphocytic leukaemia
     Dosage: UNKNOWN DOSE

REACTIONS (14)
  - Renal failure [Fatal]
  - Cardiac failure [Fatal]
  - Multiple organ dysfunction syndrome [Fatal]
  - Drug ineffective [Fatal]
  - Disseminated aspergillosis [Not Recovered/Not Resolved]
  - Respiratory failure [Unknown]
  - Septic shock [Unknown]
  - Myelosuppression [Unknown]
  - Abscess fungal [Not Recovered/Not Resolved]
  - Agranulocytosis [Not Recovered/Not Resolved]
  - Leukopenia [Not Recovered/Not Resolved]
  - Pancreatitis acute [Unknown]
  - Therapeutic response decreased [Unknown]
  - Pyrexia [Not Recovered/Not Resolved]
